FAERS Safety Report 14262164 (Version 1)
Quarter: 2017Q4

REPORT INFORMATION
  Report Type: Report from Study
  Country: US (occurrence: US)
  Receive Date: 20171208
  Receipt Date: 20171208
  Transmission Date: 20180321
  Serious: No
  Sender: FDA-Public Use
  Company Number: US-KYOWAKIRIN-2016BKK107701

PATIENT

DRUGS (1)
  1. GRANISETRON [Suspect]
     Active Substance: GRANISETRON
     Indication: PRODUCT USED FOR UNKNOWN INDICATION
     Dosage: 1 DF, UNK
     Route: 062

REACTIONS (5)
  - Skin swelling [Recovering/Resolving]
  - Pain [Unknown]
  - Skin irritation [Recovering/Resolving]
  - Hypersensitivity [Unknown]
  - Product adhesion issue [Unknown]
